FAERS Safety Report 6630918-0 (Version None)
Quarter: 2010Q1

REPORT INFORMATION
  Report Type: 
  Country: None (occurrence: None)
  Receive Date: 20100311
  Receipt Date: 20100301
  Transmission Date: 20100710
  Serious: Yes (Hospitalization)
  Sender: FDA-Public Use
  Company Number: DE-ELI_LILLY_AND_COMPANY-DE201003000782

PATIENT
  Age: 68 Year
  Sex: Female

DRUGS (5)
  1. ZYPREXA [Suspect]
     Indication: MOOD DISORDER DUE TO A GENERAL MEDICAL CONDITION
     Dosage: 15 MG, DAILY (1/D)
     Route: 048
     Dates: start: 20091115, end: 20091222
  2. HALDOL [Concomitant]
     Dosage: 4 MG, DAILY (1/D)
     Route: 048
     Dates: start: 20091201, end: 20091222
  3. ENALAPRIL MALEATE [Concomitant]
     Dosage: 5 MG, DAILY (1/D)
     Route: 048
  4. QUILONUM [Concomitant]
     Dosage: 450 MG, DAILY (1/D)
     Route: 048
     Dates: start: 20091116
  5. CEFTRIAXON [Concomitant]
     Dosage: 2000 MG, DAILY (1/D)
     Route: 048
     Dates: start: 20091122, end: 20091220

REACTIONS (4)
  - AGRANULOCYTOSIS [None]
  - DRUG INTERACTION [None]
  - PYREXIA [None]
  - WHITE BLOOD CELL COUNT DECREASED [None]
